FAERS Safety Report 23107625 (Version 2)
Quarter: 2023Q4

REPORT INFORMATION
  Report Type: Spontaneous
  Country: GB (occurrence: GB)
  Receive Date: 20231026
  Receipt Date: 20231102
  Transmission Date: 20240110
  Serious: Yes (Disabling, Other)
  Sender: FDA-Public Use
  Company Number: None

PATIENT
  Sex: Female

DRUGS (1)
  1. QUETIAPINE FUMARATE [Suspect]
     Active Substance: QUETIAPINE FUMARATE
     Indication: Product used for unknown indication
     Dosage: 25 MILLIGRAM, BID (50 MG AT NIGHT), TABLET
     Route: 065
     Dates: end: 20230921

REACTIONS (9)
  - Anosmia [Unknown]
  - Delusional perception [Unknown]
  - Hallucination [Recovering/Resolving]
  - Phantom shocks [Unknown]
  - Poor quality sleep [Recovering/Resolving]
  - Muscle twitching [Unknown]
  - Panic attack [Recovering/Resolving]
  - Syncope [Unknown]
  - Medication error [Unknown]

NARRATIVE: CASE EVENT DATE: 20210101
